FAERS Safety Report 15296796 (Version 3)
Quarter: 2018Q3

REPORT INFORMATION
  Report Type: Report from Study
  Country: US (occurrence: US)
  Receive Date: 20180820
  Receipt Date: 20180928
  Transmission Date: 20181010
  Serious: Yes (Hospitalization)
  Sender: FDA-Public Use
  Company Number: US-JNJFOC-20180818636

PATIENT
  Age: 84 Year
  Sex: Female

DRUGS (12)
  1. AMLODIPINE W/OLMESARTAN [Concomitant]
     Active Substance: AMLODIPINE MALEATE\OLMESARTAN MEDOXOMIL
  2. IMBRUVICA [Suspect]
     Active Substance: IBRUTINIB
     Indication: NON-HODGKIN^S LYMPHOMA
     Route: 048
     Dates: start: 20180522, end: 2018
  3. MULTIVITAMINS [Concomitant]
     Active Substance: VITAMINS
  4. ESOMEPRAZOLE MAGNESIUM. [Concomitant]
     Active Substance: ESOMEPRAZOLE MAGNESIUM
  5. BENICAR [Concomitant]
     Active Substance: OLMESARTAN MEDOXOMIL
  6. IMBRUVICA [Suspect]
     Active Substance: IBRUTINIB
     Indication: NON-HODGKIN^S LYMPHOMA
     Route: 048
     Dates: start: 20180912
  7. BYSTOLIC [Concomitant]
     Active Substance: NEBIVOLOL HYDROCHLORIDE
  8. RITUXAN [Suspect]
     Active Substance: RITUXIMAB
     Indication: PRODUCT USED FOR UNKNOWN INDICATION
     Route: 042
  9. CALCIUM [Concomitant]
     Active Substance: CALCIUM
  10. ASPIR LOW [Concomitant]
     Active Substance: ASPIRIN
  11. CALCIUM PHOSPHATE W/COLECALCIFEROL [Concomitant]
  12. ELIQUIS [Concomitant]
     Active Substance: APIXABAN

REACTIONS (6)
  - Asthenia [Unknown]
  - Tremor [Unknown]
  - Pneumonia [Not Recovered/Not Resolved]
  - Immune system disorder [Unknown]
  - Blood pressure decreased [Unknown]
  - Pyrexia [Unknown]

NARRATIVE: CASE EVENT DATE: 20180808
